FAERS Safety Report 16482077 (Version 3)
Quarter: 2019Q3

REPORT INFORMATION
  Report Type: Spontaneous
  Country: US (occurrence: US)
  Receive Date: 20190627
  Receipt Date: 20190827
  Transmission Date: 20191004
  Serious: No
  Sender: FDA-Public Use
  Company Number: US-SA-2019SA171607

PATIENT
  Age: 70 Year
  Sex: Female

DRUGS (15)
  1. PRAVASTATIN. [Concomitant]
     Active Substance: PRAVASTATIN
  2. CITALOPRAM [Concomitant]
     Active Substance: CITALOPRAM HYDROBROMIDE
  3. ROSUVASTATIN CALCIUM. [Concomitant]
     Active Substance: ROSUVASTATIN CALCIUM
  4. DULOXETINE HCL [Concomitant]
     Active Substance: DULOXETINE HYDROCHLORIDE
  5. PRAVASTATIN SODIUM. [Concomitant]
     Active Substance: PRAVASTATIN SODIUM
  6. VITAMIN D2 [Concomitant]
     Active Substance: ERGOCALCIFEROL
  7. CLOPIDOGREL [Concomitant]
     Active Substance: CLOPIDOGREL BISULFATE
  8. METOPROLOL TARTRATE. [Concomitant]
     Active Substance: METOPROLOL TARTRATE
  9. DILTIAZEM. [Concomitant]
     Active Substance: DILTIAZEM
  10. LOPID [Concomitant]
     Active Substance: GEMFIBROZIL
  11. PRALUENT [Suspect]
     Active Substance: ALIROCUMAB
     Indication: HYPERLIPIDAEMIA
     Dosage: 150 MG, QOW
     Route: 058
     Dates: start: 2019
  12. LANTUS [Concomitant]
     Active Substance: INSULIN GLARGINE
  13. EZETIMIBE. [Concomitant]
     Active Substance: EZETIMIBE
  14. ISOSORBIDE MONONITRATE. [Concomitant]
     Active Substance: ISOSORBIDE MONONITRATE
  15. HUMALOG MIX [Concomitant]
     Active Substance: INSULIN LISPRO

REACTIONS (5)
  - Oropharyngeal pain [Recovered/Resolved]
  - Rash [Unknown]
  - Nasopharyngitis [Recovered/Resolved]
  - Erythema [Recovered/Resolved]
  - Pruritus [Recovered/Resolved]

NARRATIVE: CASE EVENT DATE: 2019
